FAERS Safety Report 18257743 (Version 1)
Quarter: 2020Q3

REPORT INFORMATION
  Report Type: Spontaneous
  Country: US (occurrence: US)
  Receive Date: 20200911
  Receipt Date: 20200911
  Transmission Date: 20201103
  Serious: Yes (Hospitalization)
  Sender: FDA-Public Use
  Company Number: US-MYLANLABS-2020M1077990

PATIENT
  Age: 13 Year
  Sex: Male

DRUGS (11)
  1. LITHIUM. [Interacting]
     Active Substance: LITHIUM
     Dosage: 600 MILLIGRAM EVERY NIGHT/BEDTIME
     Route: 065
  2. FELBAMATE. [Concomitant]
     Active Substance: FELBAMATE
     Indication: LENNOX-GASTAUT SYNDROME
     Dosage: 24 MILLIGRAM/KILOGRAM, QD
     Route: 065
  3. CLOBAZAM. [Concomitant]
     Active Substance: CLOBAZAM
     Indication: LENNOX-GASTAUT SYNDROME
     Dosage: 0.5 MILLIGRAM/KILOGRAM, QD
     Route: 065
  4. QUETIAPINE. [Concomitant]
     Active Substance: QUETIAPINE
     Dosage: 400 MILLIGRAM EVERY NIGHT/BEDTIME
     Route: 065
  5. CANNABIDIOL [Interacting]
     Active Substance: CANNABIDIOL
     Indication: LENNOX-GASTAUT SYNDROME
     Dosage: 5 MILLIGRAM/KILOGRAM, QD DIVIDED IN TWICE A DAY
     Route: 065
  6. PERPHENAZINE. [Concomitant]
     Active Substance: PERPHENAZINE
     Indication: LENNOX-GASTAUT SYNDROME
     Dosage: 8 MILLIGRAM, THREE TIMES A DAY
     Route: 065
  7. QUETIAPINE. [Concomitant]
     Active Substance: QUETIAPINE
     Indication: LENNOX-GASTAUT SYNDROME
     Dosage: 200 MILLIGRAM, BID
     Route: 065
  8. TRAZODONE [Concomitant]
     Active Substance: TRAZODONE HYDROCHLORIDE
     Indication: LENNOX-GASTAUT SYNDROME
     Dosage: 300 MILLIGRAM EVERY NIGHT/BEDTIME
     Route: 065
  9. CANNABIDIOL [Interacting]
     Active Substance: CANNABIDIOL
     Dosage: 10 MILLIGRAM/KILOGRAM, QD
     Route: 065
  10. LITHIUM. [Suspect]
     Active Substance: LITHIUM
     Indication: LENNOX-GASTAUT SYNDROME
     Dosage: 600 MILLIGRAM EVERY MORNING
     Route: 065
  11. LITHIUM. [Interacting]
     Active Substance: LITHIUM
     Dosage: 300 MILLIGRAM EVERY EVENING
     Route: 065

REACTIONS (3)
  - Toxicity to various agents [Recovered/Resolved]
  - Off label use [Unknown]
  - Drug interaction [Recovered/Resolved]
